FAERS Safety Report 6556530-X (Version None)
Quarter: 2010Q1

REPORT INFORMATION
  Report Type: 
  Country: None (occurrence: None)
  Receive Date: 20100128
  Receipt Date: 20100118
  Transmission Date: 20100710
  Serious: Yes (Other)
  Sender: FDA-Public Use
  Company Number: DK-PFIZER INC-2009267304

PATIENT
  Age: 75 Year
  Sex: Male
  Weight: 82 kg

DRUGS (7)
  1. SILDENAFIL CITRATE [Suspect]
     Indication: ERECTILE DYSFUNCTION
     Dosage: UNK
     Route: 048
     Dates: start: 20080101
  2. CIALIS [Suspect]
     Indication: ERECTILE DYSFUNCTION
     Dosage: 5 MG, 1X/DAY
     Dates: start: 20080101
  3. ZOLADEX [Concomitant]
     Indication: PROSTATE CANCER
  4. SIMVASTATIN [Concomitant]
  5. MAGNYL ^DAK^ [Concomitant]
     Route: 048
  6. EZETROL [Concomitant]
     Route: 048
  7. ANDROCUR [Concomitant]

REACTIONS (5)
  - ABASIA [None]
  - CONDITION AGGRAVATED [None]
  - GAIT DISTURBANCE [None]
  - INTERMITTENT CLAUDICATION [None]
  - POOR PERIPHERAL CIRCULATION [None]
